FAERS Safety Report 12348422 (Version 1)
Quarter: 2016Q2

REPORT INFORMATION
  Report Type: Other
  Country: FR (occurrence: FR)
  Receive Date: 20160509
  Receipt Date: 20160509
  Transmission Date: 20160815
  Serious: Yes (Hospitalization)
  Sender: FDA-Public Use
  Company Number: FR-MYLANLABS-2016M1018802

PATIENT

DRUGS (6)
  1. THALIDOMIDE [Suspect]
     Active Substance: THALIDOMIDE
     Indication: PRODUCT USED FOR UNKNOWN INDICATION
     Dosage: UNK
     Dates: start: 20160408
  2. DEXAMETHASONE MYLAN [Suspect]
     Active Substance: DEXAMETHASONE
     Indication: PRODUCT USED FOR UNKNOWN INDICATION
     Dosage: UNK, CYCLE
     Route: 042
     Dates: start: 20150630, end: 20151026
  3. VELCADE [Suspect]
     Active Substance: BORTEZOMIB
     Indication: PRODUCT USED FOR UNKNOWN INDICATION
     Dosage: UNK, CYCLE
     Route: 042
     Dates: start: 20150630, end: 20151026
  4. VELCADE [Suspect]
     Active Substance: BORTEZOMIB
     Dosage: UNK UNK, CYCLE
     Route: 042
     Dates: start: 20160408, end: 20160418
  5. ENDOXAN                            /00021101/ [Suspect]
     Active Substance: CYCLOPHOSPHAMIDE
     Indication: PRODUCT USED FOR UNKNOWN INDICATION
     Dosage: UNK, CYCLE
     Route: 048
     Dates: start: 20150630, end: 20151023
  6. DEXAMETHASONE MYLAN [Suspect]
     Active Substance: DEXAMETHASONE
     Dosage: UNK UNK, CYCLE
     Route: 042
     Dates: start: 20160408, end: 20160418

REACTIONS (2)
  - Renal impairment [Unknown]
  - Haematuria [Unknown]

NARRATIVE: CASE EVENT DATE: 201506
